FAERS Safety Report 5023712-8 (Version None)
Quarter: 2006Q2

REPORT INFORMATION
  Report Type: 
  Country: None (occurrence: None)
  Receive Date: 20060428
  Receipt Date: 20050718
  Transmission Date: 20061013
  Serious: No
  Sender: FDA-Public Use
  Company Number: US-2005-012896

PATIENT
  Age: 42 Year
  Sex: Female
  Weight: 68.9 kg

DRUGS (6)
  1. LEUKINE [Suspect]
     Indication: NEUTROPENIA
     Dosage: 438 UG/DAY, SUBCUTANEOUS
     Route: 058
     Dates: start: 20050702, end: 20050705
  2. EPIRUBICIN [Concomitant]
  3. CYTOXAN [Concomitant]
  4. EMEND [Concomitant]
  5. DECADRON /NET/ (DEXAMETHASONE SODIUM PHOSPHATE) [Concomitant]
  6. COMPAZINE [Concomitant]

REACTIONS (5)
  - CYANOSIS [None]
  - DYSPNOEA [None]
  - HYPERHIDROSIS [None]
  - HYPOTENSION [None]
  - HYPOXIA [None]
